FAERS Safety Report 4508866-1 (Version None)
Quarter: 2004Q4

REPORT INFORMATION
  Report Type: 
  Country: None (occurrence: None)
  Receive Date: 20041122
  Receipt Date: 20041122
  Transmission Date: 20050328
  Serious: No
  Sender: FDA-Public Use
  Company Number: None

PATIENT
  Age: 14 Year
  Weight: 93.441 kg

DRUGS (6)
  1. FLUOXETINE [Suspect]
     Dosage: 10 MG PO QAM [STARTED BY OUTSIDE PROVIDER]
     Route: 048
  2. ADDERALL 10 [Concomitant]
  3. LEVOTHYROXINE SODIUM [Concomitant]
  4. LITHIUM CARBONATE [Concomitant]
  5. OLANZAPINE [Concomitant]
  6. TOPIRMATE [Concomitant]

REACTIONS (2)
  - DYSGEUSIA [None]
  - PARAESTHESIA CIRCUMORAL [None]
